FAERS Safety Report 17314028 (Version 8)
Quarter: 2021Q2

REPORT INFORMATION
  Report Type: Report from Study
  Country: US (occurrence: US)
  Receive Date: 20200124
  Receipt Date: 20210429
  Transmission Date: 20210716
  Serious: Yes (Hospitalization, Other)
  Sender: FDA-Public Use
  Company Number: US-GLAXOSMITHKLINE-2019-TSO03067-US

PATIENT
  Age: 61 Year
  Sex: Female

DRUGS (10)
  1. NIRAPARIB [Suspect]
     Active Substance: NIRAPARIB
     Dosage: 300 MG, QD
     Route: 048
  2. NIRAPARIB [Suspect]
     Active Substance: NIRAPARIB
     Dosage: 200 MG, QD
  3. NIRAPARIB [Suspect]
     Active Substance: NIRAPARIB
     Dosage: 200 MG, QD
     Route: 048
  4. NIRAPARIB [Suspect]
     Active Substance: NIRAPARIB
     Dosage: 100 MG, QD
     Route: 048
  5. NIRAPARIB [Suspect]
     Active Substance: NIRAPARIB
     Dosage: 200 MG, QD
  6. NIRAPARIB [Suspect]
     Active Substance: NIRAPARIB
     Dosage: 200 MG, QD
  7. NIRAPARIB [Suspect]
     Active Substance: NIRAPARIB
     Indication: OVARIAN CANCER
     Dosage: 300 MG, QPM WITHOUT FOOD
     Route: 048
     Dates: start: 20190826
  8. NIRAPARIB [Suspect]
     Active Substance: NIRAPARIB
     Dosage: 200 MG, QD
     Route: 048
  9. NIRAPARIB [Suspect]
     Active Substance: NIRAPARIB
     Dosage: 200 MG, QD
     Route: 048
  10. NIRAPARIB [Suspect]
     Active Substance: NIRAPARIB
     Dosage: 200 MG, QD

REACTIONS (30)
  - Taste disorder [Unknown]
  - Urticaria [Unknown]
  - Constipation [Unknown]
  - Loss of consciousness [Unknown]
  - Fall [Unknown]
  - Hypotension [Unknown]
  - Dizziness [Not Recovered/Not Resolved]
  - Stomatitis [Unknown]
  - Pelvic pain [Unknown]
  - Computerised tomogram abnormal [Unknown]
  - Abdominal distension [Not Recovered/Not Resolved]
  - Pain [Recovered/Resolved]
  - Lung disorder [Unknown]
  - Neck pain [Unknown]
  - Seasonal allergy [Unknown]
  - Nausea [Unknown]
  - Rash [Unknown]
  - Pruritus [Unknown]
  - Chest discomfort [Unknown]
  - Tumour marker increased [Unknown]
  - Haemoglobin decreased [Recovering/Resolving]
  - Urinary tract infection [Unknown]
  - Abdominal discomfort [Unknown]
  - Sinus disorder [Unknown]
  - Headache [Not Recovered/Not Resolved]
  - Laboratory test abnormal [Unknown]
  - Bone pain [Unknown]
  - Arthritis [Unknown]
  - Allergic sinusitis [Not Recovered/Not Resolved]
  - Carbohydrate antigen 125 increased [Unknown]

NARRATIVE: CASE EVENT DATE: 2019
